FAERS Safety Report 12124984 (Version 1)
Quarter: 2016Q1

REPORT INFORMATION
  Report Type: Other
  Country: GB (occurrence: GB)
  Receive Date: 20160229
  Receipt Date: 20160229
  Transmission Date: 20160526
  Serious: Yes (Other)
  Sender: FDA-Public Use
  Company Number: GB-MACLEODS PHARMACEUTICALS US LTD-MAC2016002442

PATIENT

DRUGS (6)
  1. ASPIRIN. [Concomitant]
     Active Substance: ASPIRIN
     Indication: PRODUCT USED FOR UNKNOWN INDICATION
     Dosage: UNK
     Route: 065
  2. BISOPROLOL FUMARATE. [Concomitant]
     Active Substance: BISOPROLOL FUMARATE
     Indication: PRODUCT USED FOR UNKNOWN INDICATION
     Dosage: UNK
     Route: 065
  3. CLOPIDOGREL FILM COATED TABLET 75 MG [Suspect]
     Active Substance: CLOPIDOGREL BISULFATE
     Indication: ANGIOGRAM
     Dosage: 75 MG
     Route: 048
     Dates: start: 20160207
  4. L-THYROXINE SODIUM [Concomitant]
     Active Substance: LEVOTHYROXINE SODIUM
     Indication: PRODUCT USED FOR UNKNOWN INDICATION
     Dosage: UNK
     Route: 065
  5. CITALOPRAM [Concomitant]
     Active Substance: CITALOPRAM HYDROBROMIDE
     Indication: PRODUCT USED FOR UNKNOWN INDICATION
     Dosage: UNK
     Route: 065
  6. ELANTAN [Concomitant]
     Active Substance: ISOSORBIDE MONONITRATE
     Indication: PRODUCT USED FOR UNKNOWN INDICATION
     Dosage: UNK
     Route: 065

REACTIONS (4)
  - Dyskinesia [Recovered/Resolved]
  - Erythema [Not Recovered/Not Resolved]
  - Pyrexia [Recovered/Resolved]
  - Rash macular [Not Recovered/Not Resolved]

NARRATIVE: CASE EVENT DATE: 20160207
